FAERS Safety Report 9381444 (Version 6)
Quarter: 2014Q1

REPORT INFORMATION
  Report Type: Report from Study
  Country: CA (occurrence: CA)
  Receive Date: 20130703
  Receipt Date: 20140203
  Transmission Date: 20141002
  Serious: Yes (Hospitalization)
  Sender: FDA-Public Use
  Company Number: PHHY2013CA069083

PATIENT
  Sex: Female

DRUGS (5)
  1. CLOZARIL [Suspect]
     Indication: SCHIZOPHRENIA
     Dosage: UNK UKN, UNK
     Dates: start: 20120419
  2. CLOZARIL [Suspect]
     Dosage: 550 MG, DAILY
  3. CLOZARIL [Suspect]
     Dosage: 400 MG, UNK
  4. SEROQUEL [Concomitant]
     Dosage: UNK UKN, UNK
  5. SEROQUEL [Concomitant]
     Dosage: 200 MG, (DOSE REDUCED)

REACTIONS (5)
  - Loss of consciousness [Unknown]
  - Fall [Unknown]
  - Laceration [Unknown]
  - Hypoglycaemia [Unknown]
  - Cognitive disorder [Unknown]
